FAERS Safety Report 5930794-5 (Version None)
Quarter: 2008Q4

REPORT INFORMATION
  Report Type: 
  Country: None (occurrence: None)
  Receive Date: 20081027
  Receipt Date: 20081016
  Transmission Date: 20090506
  Serious: No
  Sender: FDA-Public Use
  Company Number: US-ROCHE-592568

PATIENT
  Age: 20 Year
  Sex: Female

DRUGS (2)
  1. ACCUTANE [Suspect]
     Route: 065
     Dates: start: 20080401, end: 20080701
  2. ACCUTANE [Suspect]
     Dosage: RECEIVED TWO DOSES TOGETHER
     Route: 065
     Dates: start: 20080918

REACTIONS (2)
  - NO ADVERSE EVENT [None]
  - PREGNANCY [None]
